FAERS Safety Report 9304990 (Version 1)
Quarter: 2013Q2

REPORT INFORMATION
  Report Type: Spontaneous
  Country: US (occurrence: None)
  Receive Date: 20130521
  Receipt Date: 20130521
  Transmission Date: 20140414
  Serious: Yes (Hospitalization)
  Sender: FDA-Public Use
  Company Number: None

PATIENT
  Age: 50 Year
  Sex: Female
  Weight: 80.8 kg

DRUGS (2)
  1. REMICADE [Suspect]
     Indication: PSORIASIS
     Dosage: 500 MG Q 5 WEEKS IV
     Route: 042
  2. REMICADE [Suspect]
     Indication: RHEUMATOID ARTHRITIS
     Dosage: 500 MG Q 5 WEEKS IV
     Route: 042

REACTIONS (11)
  - Pruritus [None]
  - Chest discomfort [None]
  - Palpitations [None]
  - Chest discomfort [None]
  - Infusion related reaction [None]
  - Dizziness [None]
  - Nausea [None]
  - Dyspnoea exertional [None]
  - Anxiety [None]
  - Blood creatine phosphokinase MB increased [None]
  - Hypersensitivity [None]
